FAERS Safety Report 19177031 (Version 3)
Quarter: 2021Q2

REPORT INFORMATION
  Report Type: Report from Study
  Country: DO (occurrence: DO)
  Receive Date: 20210424
  Receipt Date: 20210513
  Transmission Date: 20210717
  Serious: Yes (Other)
  Sender: FDA-Public Use
  Company Number: NVSC2021DO087305

PATIENT
  Age: 56 Year
  Sex: Male

DRUGS (7)
  1. VYMADA [Suspect]
     Active Substance: SACUBITRIL\VALSARTAN
     Indication: CARDIAC FAILURE
     Dosage: 50 MG (HALF TABLET IN THE MORNING AND HALF A TABLET AT NIGHT)
     Route: 065
     Dates: start: 201906
  2. METFORMINE [Concomitant]
     Active Substance: METFORMIN HYDROCHLORIDE
     Indication: DIABETES MELLITUS
     Dosage: 580 MG, BID
     Route: 048
     Dates: start: 2008
  3. PROCORALAN [Concomitant]
     Active Substance: IVABRADINE
     Dosage: 50 MG
     Route: 065
  4. CARVEDILOL. [Concomitant]
     Active Substance: CARVEDILOL
     Indication: HYPERTENSION
     Dosage: 6.25 MG
     Route: 048
     Dates: start: 2008
  5. VYMADA [Suspect]
     Active Substance: SACUBITRIL\VALSARTAN
     Indication: INFARCTION
     Dosage: ONE WHOLE TABLET IN THE MORNING HALF AT A NIGHT
     Route: 065
  6. FUROSEMIDE. [Concomitant]
     Active Substance: FUROSEMIDE
     Indication: DIURETIC THERAPY
     Dosage: 40 MG, QD
     Route: 048
     Dates: start: 2008
  7. PROCORALAN [Concomitant]
     Active Substance: IVABRADINE
     Indication: CARDIAC FUNCTION TEST
     Dosage: 5 MG, BID
     Route: 048
     Dates: start: 2019

REACTIONS (6)
  - Coronary artery disease [Unknown]
  - Cardiac function test abnormal [Recovering/Resolving]
  - Cardiac disorder [Unknown]
  - Dizziness [Unknown]
  - Wrong technique in product usage process [Unknown]
  - Fluid retention [Unknown]

NARRATIVE: CASE EVENT DATE: 201906
